FAERS Safety Report 22284300 (Version 1)
Quarter: 2023Q2

REPORT INFORMATION
  Report Type: Spontaneous
  Country: GB (occurrence: GB)
  Receive Date: 20230504
  Receipt Date: 20230504
  Transmission Date: 20230721
  Serious: Yes (Other)
  Sender: FDA-Public Use
  Company Number: None

PATIENT
  Age: 29 Year
  Sex: Female

DRUGS (1)
  1. MIRTAZAPINE [Suspect]
     Active Substance: MIRTAZAPINE
     Indication: Depressed mood
     Dosage: 15 MILLIGRAM, UNK
     Route: 065
     Dates: start: 20230422, end: 20230426

REACTIONS (11)
  - Suicidal ideation [Recovered/Resolved]
  - Photosensitivity reaction [Not Recovered/Not Resolved]
  - Dizziness postural [Recovered/Resolved]
  - Vision blurred [Recovered/Resolved]
  - Anger [Recovering/Resolving]
  - Vertigo [Recovered/Resolved]
  - Asthenia [Recovered/Resolved]
  - Aggression [Recovering/Resolving]
  - Somnolence [Recovered/Resolved]
  - Confusional state [Recovered/Resolved]
  - Dysarthria [Recovered/Resolved]

NARRATIVE: CASE EVENT DATE: 20230427
